FAERS Safety Report 5971926-2 (Version None)
Quarter: 2008Q4

REPORT INFORMATION
  Report Type: 
  Country: None (occurrence: None)
  Receive Date: 20081125
  Receipt Date: 20081110
  Transmission Date: 20090506
  Serious: Yes (Other)
  Sender: FDA-Public Use
  Company Number: 2008PL000210

PATIENT
  Age: 35 Year
  Sex: Male

DRUGS (2)
  1. IMURAN [Suspect]
     Indication: DRUG USE FOR UNKNOWN INDICATION
  2. CYCLOSPORINE [Concomitant]

REACTIONS (1)
  - BASAL CELL CARCINOMA [None]
